FAERS Safety Report 12845255 (Version 2)
Quarter: 2018Q2

REPORT INFORMATION
  Report Type: Spontaneous
  Country: DK (occurrence: DK)
  Receive Date: 20161013
  Receipt Date: 20180517
  Transmission Date: 20180711
  Serious: Yes (Hospitalization)
  Sender: FDA-Public Use
  Company Number: DK-ASTRAZENECA-2016SF06689

PATIENT
  Age: 331 Month
  Sex: Female
  Weight: 84 kg

DRUGS (5)
  1. DEPO-PROVERA [Concomitant]
     Active Substance: MEDROXYPROGESTERONE ACETATE
  2. SEROQUEL [Suspect]
     Active Substance: QUETIAPINE FUMARATE
     Indication: MENTAL DISORDER
     Route: 048
     Dates: end: 201506
  3. TRUXAL [Concomitant]
     Active Substance: CHLORPROTHIXENE
  4. LAMOTRIGINE. [Suspect]
     Active Substance: LAMOTRIGINE
     Indication: MOOD SWINGS
     Route: 048
     Dates: end: 201410
  5. CITALOPRAM [Concomitant]
     Active Substance: CITALOPRAM HYDROBROMIDE

REACTIONS (9)
  - Interstitial lung disease [Unknown]
  - Carbon monoxide diffusing capacity decreased [Recovering/Resolving]
  - Alveolitis allergic [Unknown]
  - Pulmonary embolism [Unknown]
  - Dyspnoea [Recovering/Resolving]
  - Pneumonitis [Recovered/Resolved]
  - Pulmonary function test decreased [Recovering/Resolving]
  - Chest discomfort [Recovering/Resolving]
  - Oxygen therapy [Recovered/Resolved]

NARRATIVE: CASE EVENT DATE: 201303
